FAERS Safety Report 6810655-X (Version None)
Quarter: 2010Q2

REPORT INFORMATION
  Report Type: 
  Country: None (occurrence: None)
  Receive Date: 20100629
  Receipt Date: 20100629
  Transmission Date: 20101027
  Serious: Yes (Life-Threatening, Hospitalization, Disabling, Other)
  Sender: FDA-Public Use
  Company Number: None

PATIENT
  Age: 33 Year
  Sex: Female
  Weight: 58.9676 kg

DRUGS (2)
  1. YAZ [Suspect]
     Indication: CONTRACEPTION
     Dosage: 1 PER DAY ONCE PO
     Route: 048
     Dates: start: 20080101, end: 20100201
  2. YASMIN [Suspect]
     Dosage: YASMIN ONCE PO
     Route: 048
     Dates: start: 20030101, end: 20060101

REACTIONS (3)
  - CHOLECYSTECTOMY [None]
  - DEEP VEIN THROMBOSIS [None]
  - NEPHROLITHIASIS [None]
